FAERS Safety Report 10047249 (Version 2)
Quarter: 2014Q1

REPORT INFORMATION
  Report Type: Spontaneous
  Country: US (occurrence: US)
  Receive Date: 20140331
  Receipt Date: 20140331
  Transmission Date: 20141002
  Serious: No
  Sender: FDA-Public Use
  Company Number: US-MYLANLABS-2013S1024619

PATIENT
  Age: 37 Year
  Sex: Female
  Weight: 53.52 kg

DRUGS (6)
  1. FENTANYL TRANSDERMAL SYSTEM [Suspect]
     Indication: BACK PAIN
     Dosage: Q72HR
     Route: 062
     Dates: start: 2007, end: 20131030
  2. FENTANYL TRANSDERMAL SYSTEM [Suspect]
     Indication: PAIN
     Dosage: Q72HR
     Route: 062
     Dates: start: 2007, end: 20131030
  3. FENTANYL TRANSDERMAL SYSTEM [Suspect]
     Indication: BACK PAIN
     Dosage: Q72HR
     Route: 062
     Dates: start: 20131031
  4. FENTANYL TRANSDERMAL SYSTEM [Suspect]
     Indication: PAIN
     Dosage: Q72HR
     Route: 062
     Dates: start: 20131031
  5. PERCOCET [Concomitant]
     Indication: PAIN
     Dosage: 5MG/325MG
  6. VICODIN [Concomitant]
     Indication: PAIN

REACTIONS (2)
  - Drug effect increased [Recovered/Resolved]
  - Panic attack [Recovered/Resolved]
